FAERS Safety Report 19901291 (Version 1)
Quarter: 2021Q3

REPORT INFORMATION
  Report Type: Spontaneous
  Country: US (occurrence: US)
  Receive Date: 20210930
  Receipt Date: 20210930
  Transmission Date: 20211014
  Serious: No
  Sender: FDA-Public Use
  Company Number: None

PATIENT
  Age: 7 Year
  Sex: Female
  Weight: 20.8 kg

DRUGS (4)
  1. HYDROXYUREA. [Concomitant]
     Active Substance: HYDROXYUREA
     Dates: start: 20190807
  2. IMDEVIMAB. [Suspect]
     Active Substance: IMDEVIMAB
     Indication: COVID-19
     Dosage: ?          OTHER FREQUENCY:ONCE;?
     Route: 042
     Dates: start: 20210827, end: 20210827
  3. PENNICILLIN [Concomitant]
     Dates: start: 20140806
  4. CASIRIVIMAB. [Suspect]
     Active Substance: CASIRIVIMAB
     Indication: COVID-19
     Dosage: ?          OTHER FREQUENCY:ONCE;?
     Route: 042
     Dates: start: 20210827, end: 20210827

REACTIONS (1)
  - Incorrect dose administered [None]

NARRATIVE: CASE EVENT DATE: 20210827
